FAERS Safety Report 24250814 (Version 1)
Quarter: 2024Q3

REPORT INFORMATION
  Report Type: Spontaneous
  Country: IT (occurrence: IT)
  Receive Date: 20240826
  Receipt Date: 20240826
  Transmission Date: 20241016
  Serious: Yes (Other)
  Sender: BAYER
  Company Number: IT-BAYER-2024A119387

PATIENT

DRUGS (1)
  1. KYLEENA [Suspect]
     Active Substance: LEVONORGESTREL
     Indication: Contraception
     Dosage: 17.5?G/DAY
     Route: 015
     Dates: start: 2020

REACTIONS (2)
  - Congenital central nervous system anomaly [None]
  - Foetal exposure during pregnancy [None]
